FAERS Safety Report 24325743 (Version 1)
Quarter: 2024Q3

REPORT INFORMATION
  Report Type: Spontaneous
  Country: US (occurrence: US)
  Receive Date: 20240917
  Receipt Date: 20240917
  Transmission Date: 20241017
  Serious: Yes (Hospitalization, Other)
  Sender: ALKEM
  Company Number: US-ALKEM LABORATORIES LIMITED-US-ALKEM-2024-20116

PATIENT
  Age: 4 Year
  Sex: Female

DRUGS (3)
  1. LIDOCAINE [Suspect]
     Active Substance: LIDOCAINE
     Indication: Pain
     Dosage: UNK
     Route: 061
  2. LIDOCAINE [Suspect]
     Active Substance: LIDOCAINE
     Dosage: UNK (SPRAY)
     Route: 061
  3. LIDOCAINE [Suspect]
     Active Substance: LIDOCAINE
     Dosage: UNK (CREAM)
     Route: 061

REACTIONS (4)
  - Generalised tonic-clonic seizure [Recovering/Resolving]
  - Apnoeic attack [Recovering/Resolving]
  - Toxicity to various agents [Recovering/Resolving]
  - Lethargy [Recovering/Resolving]
